FAERS Safety Report 5104351-7 (Version None)
Quarter: 2006Q3

REPORT INFORMATION
  Report Type: 
  Country: None (occurrence: None)
  Receive Date: 20060731
  Receipt Date: 20060425
  Transmission Date: 20061208
  Serious: Yes (Death, Hospitalization)
  Sender: FDA-Public Use
  Company Number: US-JNJFOC-20060203233

PATIENT
  Age: 81 Year
  Sex: Female
  Weight: 70.3075 kg

DRUGS (5)
  1. RISPERDAL [Suspect]
     Indication: DEMENTIA
     Dosage: 0.5 MG, IN 1 DAY
     Dates: start: 20041215, end: 20051101
  2. ARICEPT [Concomitant]
  3. NAMENDA [Concomitant]
  4. LEXAPRO (SSRI) [Concomitant]
  5. ACTONEL [Concomitant]

REACTIONS (1)
  - CEREBROVASCULAR ACCIDENT [None]
